FAERS Safety Report 7016733-7 (Version None)
Quarter: 2010Q3

REPORT INFORMATION
  Report Type: 
  Country: None (occurrence: None)
  Receive Date: 20100927
  Receipt Date: 20100915
  Transmission Date: 20110219
  Serious: Yes (Other)
  Sender: FDA-Public Use
  Company Number: US-WYE-H17573310

PATIENT
  Sex: Female

DRUGS (15)
  1. EFFEXOR [Suspect]
     Indication: DEPRESSION
     Dosage: UNKNOWN DOSE
     Dates: end: 20070101
  2. EFFEXOR [Suspect]
     Dosage: RESTARTED THERAPY DOSE UNKNOWN
  3. EFFEXOR [Suspect]
     Dosage: DAILY DOSE UNKNOWN WAS INCREASED TO TWICE DAILY
  4. EFFEXOR [Suspect]
     Dosage: DECREASED DOSE TO ONCE DAILY THEN ONE EVERY OTHER DAY
     Dates: end: 20100801
  5. SPIRONOLACTONE [Suspect]
     Dates: start: 20080101
  6. WARFARIN [Concomitant]
  7. NITROGLYCERIN [Concomitant]
     Dosage: UNKNOWN
  8. MECLIZINE [Concomitant]
     Dosage: UNKNOWN
  9. SYNTHROID [Concomitant]
     Dosage: UNKNOWN
  10. LEVOTHROID [Concomitant]
     Dosage: UNKNOWN
  11. OMEPRAZOLE [Concomitant]
     Dosage: UNKNOWN
  12. SIMVASTATIN [Concomitant]
     Dosage: UNKNOWN
  13. CARVEDILOL [Concomitant]
     Dosage: UNKNOWN
  14. PREMARIN [Suspect]
     Dosage: UNKNOWN
     Dates: end: 20070101
  15. ISOSORBIDE DINITRATE [Concomitant]
     Dosage: UNKNOWN

REACTIONS (7)
  - CARDIAC ABLATION [None]
  - CARDIAC PACEMAKER INSERTION [None]
  - DEPRESSED MOOD [None]
  - DRUG WITHDRAWAL SYNDROME [None]
  - HALLUCINATION, VISUAL [None]
  - INSOMNIA [None]
  - INTENTIONAL DRUG MISUSE [None]
